FAERS Safety Report 11800782 (Version 2)
Quarter: 2016Q2

REPORT INFORMATION
  Report Type: Spontaneous
  Country: US (occurrence: US)
  Receive Date: 20151204
  Receipt Date: 20160606
  Transmission Date: 20160815
  Serious: No
  Sender: FDA-Public Use
  Company Number: US-ASTRAZENECA-2015SF18945

PATIENT
  Sex: Female

DRUGS (1)
  1. TUDORZA PRESSAIR [Suspect]
     Active Substance: ACLIDINIUM BROMIDE
     Dosage: 400 UG,ONE PUFF,TWO TIMES A DAY
     Route: 055

REACTIONS (3)
  - Intentional device misuse [Unknown]
  - Confusional state [Unknown]
  - Device malfunction [Unknown]
